FAERS Safety Report 4436063-7 (Version None)
Quarter: 2004Q3

REPORT INFORMATION
  Report Type: 
  Country: None (occurrence: None)
  Receive Date: 20040726
  Receipt Date: 20040517
  Transmission Date: 20050211
  Serious: No
  Sender: FDA-Public Use
  Company Number: USA040466153

PATIENT
  Age: 78 Year
  Sex: Female
  Weight: 52 kg

DRUGS (2)
  1. FORTEO [Suspect]
     Indication: OSTEOPOROSIS
     Dosage: 20 UG EVERY OTHER DAY
     Dates: start: 20040101
  2. DONNATAL [Concomitant]

REACTIONS (4)
  - DIZZINESS [None]
  - ERYTHEMA [None]
  - JOINT SWELLING [None]
  - PAIN IN EXTREMITY [None]
